FAERS Safety Report 6997961-3 (Version None)
Quarter: 2010Q3

REPORT INFORMATION
  Report Type: 
  Country: None (occurrence: None)
  Receive Date: 20100920
  Receipt Date: 20100914
  Transmission Date: 20110219
  Serious: Yes (Hospitalization)
  Sender: FDA-Public Use
  Company Number: US-WYE-H14578210

PATIENT
  Age: 75 Year
  Sex: Female
  Weight: 77.3 kg

DRUGS (9)
  1. TORISEL [Suspect]
     Indication: OVARIAN CANCER
     Dosage: 25 MG OVER 30 MINUTES ON DAYS 1, 8, 15 AND 22
     Route: 042
     Dates: start: 20100301, end: 20100322
  2. TORISEL [Suspect]
     Dosage: CYCLE 2 - TOTAL DOSE ADMINISTERED THIS COURSE 100 MG
     Route: 042
     Dates: start: 20100412, end: 20100503
  3. SIMVASTATIN [Concomitant]
  4. ACTONEL [Concomitant]
  5. DICLOFENAC [Concomitant]
  6. HYDROCODONE BITARTRATE AND ACETAMINOPHEN [Concomitant]
  7. BEVACIZUMAB [Suspect]
     Indication: OVARIAN CANCER
     Dosage: 10 MG/KG OVER 30 - 90 MINUTES ON DAYS 1 AND 15
     Route: 042
     Dates: start: 20100301, end: 20100315
  8. BEVACIZUMAB [Suspect]
     Dosage: CYCLE 2 - TOTAL DOSE ADMINISTERED THIS COURSE 1546 MG
     Route: 042
     Dates: start: 20100412, end: 20100426
  9. HYDROCHLOROTHIAZIDE [Concomitant]

REACTIONS (6)
  - DEHYDRATION [None]
  - FATIGUE [None]
  - HYPOKALAEMIA [None]
  - HYPOPHOSPHATAEMIA [None]
  - MUCOSAL INFLAMMATION [None]
  - MUSCULOSKELETAL PAIN [None]
